FAERS Safety Report 4756105-9 (Version None)
Quarter: 2005Q3

REPORT INFORMATION
  Report Type: 
  Country: None (occurrence: None)
  Receive Date: 20050830
  Receipt Date: 20050815
  Transmission Date: 20060218
  Serious: Yes (Hospitalization)
  Sender: FDA-Public Use
  Company Number: GBWYE908515AUG05

PATIENT
  Age: 78 Year
  Sex: Female
  Weight: 65.6 kg

DRUGS (8)
  1. ENBREL [Suspect]
     Indication: RHEUMATOID ARTHRITIS
     Route: 058
     Dates: start: 20041027, end: 20050201
  2. VALDECOXIB [Concomitant]
     Indication: RHEUMATOID ARTHRITIS
     Route: 048
     Dates: start: 20040101, end: 20050310
  3. PREDNISOLONE [Concomitant]
     Indication: RHEUMATOID ARTHRITIS
     Route: 048
     Dates: start: 19950101
  4. RISEDRONATE [Concomitant]
     Indication: OSTEOPOROSIS
     Dosage: 35MG WEEKLY
     Route: 048
  5. TRAMADOL HCL [Concomitant]
     Indication: RHEUMATOID ARTHRITIS
     Route: 048
  6. TRAMADOL HCL [Concomitant]
     Indication: PAIN
  7. AMITRIPTYLINE HCL [Concomitant]
     Indication: RHEUMATOID ARTHRITIS
     Route: 048
  8. AMITRIPTYLINE HCL [Concomitant]
     Indication: PAIN

REACTIONS (4)
  - DECREASED APPETITE [None]
  - LETHARGY [None]
  - LIVER DISORDER [None]
  - RENAL IMPAIRMENT [None]
